FAERS Safety Report 16150116 (Version 2)
Quarter: 2019Q2

REPORT INFORMATION
  Report Type: Report from Study
  Country: US (occurrence: US)
  Receive Date: 20190402
  Receipt Date: 20190411
  Transmission Date: 20190711
  Serious: Yes (Death, Hospitalization, Other)
  Sender: FDA-Public Use
  Company Number: US-CELGENEUS-USA-20180807461

PATIENT
  Age: 73 Year
  Sex: Male
  Weight: 65.1 kg

DRUGS (1)
  1. IDHIFA [Suspect]
     Active Substance: ENASIDENIB MESYLATE
     Indication: ACUTE MYELOID LEUKAEMIA
     Dosage: 100 MILLIGRAM
     Route: 048
     Dates: start: 20170821, end: 20171102

REACTIONS (4)
  - Febrile neutropenia [Recovered/Resolved]
  - Death [Fatal]
  - Pancytopenia [Not Recovered/Not Resolved]
  - Leukaemic infiltration extramedullary [Recovered/Resolved]

NARRATIVE: CASE EVENT DATE: 20171003
